FAERS Safety Report 9643742 (Version 3)
Quarter: 2014Q1

REPORT INFORMATION
  Report Type: Spontaneous
  Country: CH (occurrence: CH)
  Receive Date: 20131024
  Receipt Date: 20140107
  Transmission Date: 20141002
  Serious: Yes (Other)
  Sender: FDA-Public Use
  Company Number: CH-PFIZER INC-2013283338

PATIENT
  Age: 47 Year
  Sex: Female
  Weight: 57 kg

DRUGS (2)
  1. SAYANA [Suspect]
     Indication: DYSMENORRHOEA
     Dosage: 104 MG/ 0.65 ML, EVERY 12 WEEKS
     Route: 058
     Dates: start: 20121217, end: 20130603
  2. SAYANA [Suspect]
     Indication: MENORRHAGIA

REACTIONS (3)
  - Injection site reaction [Not Recovered/Not Resolved]
  - Injection site necrosis [Not Recovered/Not Resolved]
  - Off label use [Recovered/Resolved]
